FAERS Safety Report 21208023 (Version 1)
Quarter: 2022Q3

REPORT INFORMATION
  Report Type: Spontaneous
  Country: US (occurrence: US)
  Receive Date: 20220812
  Receipt Date: 20220812
  Transmission Date: 20221026
  Serious: Yes (Other)
  Sender: FDA-Public Use
  Company Number: US-TAKEDA-2022TUS053602

PATIENT
  Sex: Female

DRUGS (1)
  1. FLEXBUMIN [Suspect]
     Active Substance: ALBUMIN HUMAN
     Indication: Product used for unknown indication
     Dosage: UNK
     Route: 065

REACTIONS (1)
  - Protein-losing gastroenteropathy [Unknown]
